FAERS Safety Report 8481674-5 (Version None)
Quarter: 2012Q3

REPORT INFORMATION
  Report Type: 
  Country: None (occurrence: None)
  Receive Date: 20120702
  Receipt Date: 20120628
  Transmission Date: 20120928
  Serious: Yes (Hospitalization)
  Sender: FDA-Public Use
  Company Number: FR-ROCHE-1082871

PATIENT
  Age: 77 Year
  Sex: Female

DRUGS (2)
  1. LEVOFLOXACIN [Suspect]
     Indication: SEPSIS
     Route: 042
     Dates: start: 20120607
  2. ROCEPHIN [Suspect]
     Indication: SEPSIS
     Route: 042
     Dates: start: 20120607

REACTIONS (1)
  - INJECTION SITE INFLAMMATION [None]
